FAERS Safety Report 6933984 (Version 3)
Quarter: 2014Q1

REPORT INFORMATION
  Report Type: Spontaneous
  Country: US (occurrence: None)
  Receive Date: 20090227
  Receipt Date: 20140304
  Transmission Date: 20141002
  Serious: Yes (Hospitalization)
  Sender: FDA-Public Use
  Company Number: RB-2474-2008

PATIENT
  Sex: Female

DRUGS (2)
  1. SUBOXONE [Suspect]
     Indication: DRUG DEPENDENCE
     Dosage: 8 MG BID TRANSPLACENTAL, 8 MG QD TRANSPLACENTAL
     Route: 064
     Dates: start: 200710, end: 200711
  2. SUBUTEX 8 MG [Suspect]
     Indication: DRUG DEPENDENCE
     Dosage: 8 MG BID TRANSPLACENTAL
     Route: 064
     Dates: start: 200711, end: 20071229

REACTIONS (3)
  - Diarrhoea [None]
  - Decreased appetite [None]
  - Foetal exposure during pregnancy [None]
